FAERS Safety Report 8367478-2 (Version None)
Quarter: 2012Q2

REPORT INFORMATION
  Report Type: 
  Country: None (occurrence: None)
  Receive Date: 20120517
  Receipt Date: 20120301
  Transmission Date: 20120825
  Serious: No
  Sender: FDA-Public Use
  Company Number: US-GLAXOSMITHKLINE-A0969022A

PATIENT
  Age: 84 Year
  Sex: Male

DRUGS (15)
  1. HUMALOG [Concomitant]
  2. VITAMIN B-12 [Concomitant]
  3. ASPIRIN [Concomitant]
  4. LANTUS [Concomitant]
  5. LASIX [Concomitant]
  6. NEXIUM [Concomitant]
  7. KLOR-CON [Concomitant]
  8. LIPITOR [Concomitant]
  9. VOTRIENT [Suspect]
     Indication: PRODUCT USED FOR UNKNOWN INDICATION
     Dosage: 800MG PER DAY
     Route: 048
  10. METOPROLOL TARTRATE [Concomitant]
  11. PAROXETINE [Concomitant]
  12. ISOSORBID MONONITRATE [Concomitant]
  13. LYRICA [Concomitant]
  14. LEVOTHYROXINE SODIUM [Concomitant]
  15. ARICEPT [Concomitant]

REACTIONS (1)
  - DIARRHOEA [None]
